FAERS Safety Report 9083984 (Version 2)
Quarter: 2013Q1

REPORT INFORMATION
  Report Type: Spontaneous
  Country: CA (occurrence: CA)
  Receive Date: 20130218
  Receipt Date: 20130313
  Transmission Date: 20140127
  Serious: Yes (Other)
  Sender: FDA-Public Use
  Company Number: PHHY2011CA85299

PATIENT
  Age: 56 None
  Sex: Male

DRUGS (4)
  1. SANDOSTATIN LAR [Suspect]
     Indication: CARCINOID TUMOUR
     Dosage: 20 MG, EVERY 4 WEEKS
     Route: 030
     Dates: start: 20110922
  2. SANDOSTATIN LAR [Suspect]
     Dosage: 20 MG, ONCE IN A MONTH
     Route: 030
  3. CHEMOTHERAPEUTICS [Concomitant]
     Dosage: UNK UKN, UNK
     Dates: start: 20130122
  4. CHEMOTHERAPEUTICS [Concomitant]
     Dosage: UNK
     Dates: start: 20130212

REACTIONS (14)
  - Blood pressure diastolic increased [Unknown]
  - Blood pressure increased [Unknown]
  - Musculoskeletal pain [Unknown]
  - Anal spasm [Unknown]
  - Angiotensin converting enzyme decreased [Unknown]
  - Renal pain [Unknown]
  - Testicular pain [Unknown]
  - Haematochezia [Unknown]
  - Device occlusion [Unknown]
  - Heart rate increased [Unknown]
  - Diarrhoea [Unknown]
  - Constipation [Unknown]
  - Nausea [Unknown]
  - Vomiting [Unknown]
